FAERS Safety Report 8097045-X (Version None)
Quarter: 2012Q1

REPORT INFORMATION
  Report Type: 
  Country: None (occurrence: None)
  Receive Date: 20120131
  Receipt Date: 20120123
  Transmission Date: 20120608
  Serious: Yes (Hospitalization)
  Sender: FDA-Public Use
  Company Number: GB-VERTEX PHARMACEUTICALS INC.-AE-2011-000390

PATIENT
  Sex: Male
  Weight: 110 kg

DRUGS (12)
  1. PEGINTERFERON ALFA-2A [Suspect]
     Indication: HEPATITIS C
     Route: 058
     Dates: start: 20110419, end: 20110629
  2. FUROSEMIDE [Concomitant]
     Indication: OEDEMA PERIPHERAL
     Route: 048
  3. SERTRALINE HYDROCHLORIDE [Concomitant]
     Indication: DEPRESSION
     Route: 048
     Dates: start: 20110201
  4. RIBAVIRIN [Suspect]
     Indication: HEPATITIS C
     Route: 048
     Dates: start: 20110419, end: 20110629
  5. METHOCLOPRAMIDE [Concomitant]
     Route: 048
  6. VX-950 [Suspect]
     Indication: HEPATITIS C
     Route: 048
     Dates: start: 20110419, end: 20110629
  7. METHADONE HCL [Concomitant]
     Route: 048
  8. LOPERAMIDE HCL [Concomitant]
     Route: 048
     Dates: start: 20110419
  9. CO-AMOXYCLAV [Concomitant]
     Route: 048
     Dates: start: 20110503
  10. ZOPICLONE [Concomitant]
     Indication: POOR QUALITY SLEEP
     Route: 048
     Dates: start: 20110517
  11. PROPRANOLOL [Concomitant]
     Indication: DEPRESSION
     Route: 048
     Dates: start: 20110601
  12. DIHYDROCODEINE BITARTRATE INJ [Concomitant]
     Indication: INTERVERTEBRAL DISC PROTRUSION
     Route: 048

REACTIONS (6)
  - DEPRESSION [None]
  - DRUG INTOLERANCE [None]
  - CONTUSION [None]
  - OEDEMA PERIPHERAL [None]
  - OROPHARYNGEAL CANDIDIASIS [None]
  - MENTAL DISORDER [None]
